FAERS Safety Report 8521552-6 (Version None)
Quarter: 2012Q3

REPORT INFORMATION
  Report Type: 
  Country: None (occurrence: None)
  Receive Date: 20120719
  Receipt Date: 20120714
  Transmission Date: 20120928
  Serious: Yes (Hospitalization)
  Sender: FDA-Public Use
  Company Number: PHHO2012JP008271

PATIENT
  Sex: Female
  Weight: 51 kg

DRUGS (10)
  1. MAGMITT [Concomitant]
     Indication: CONSTIPATION
     Dosage: 990 MG, UNK
     Route: 048
     Dates: start: 20110501
  2. LOXOPROFEN [Concomitant]
     Indication: CANCER PAIN
     Dosage: 180 MG, UNK
     Route: 048
     Dates: start: 20110501
  3. REBAMIPIDE [Concomitant]
     Indication: GASTRITIS PROPHYLAXIS
     Dosage: 300 MG, UNK
     Route: 048
     Dates: start: 20110501
  4. LANSOPRAZOLE [Concomitant]
     Indication: GASTRITIS PROPHYLAXIS
     Dosage: 15 MG, UNK
     Route: 048
     Dates: start: 20110501
  5. ZOLEDRONIC ACID [Suspect]
     Indication: METASTASES TO BONE
     Dosage: UNK
     Dates: start: 20120313
  6. VINORELBINE [Suspect]
     Indication: BREAST CANCER METASTATIC
     Dosage: UNK
     Dates: start: 20120313
  7. AFINITOR [Suspect]
     Indication: BREAST CANCER
     Dosage: 5 MG, QD
     Route: 048
     Dates: start: 20120313
  8. COMPARATOR TRASTUZUMAB [Suspect]
     Indication: BREAST CANCER METASTATIC
     Dosage: UNK
     Dates: start: 20120313
  9. LYRICA [Concomitant]
     Indication: CANCER PAIN
     Dosage: 100 MG, UNK
     Route: 048
     Dates: start: 20110501
  10. FENTANYL-100 [Concomitant]
     Indication: CANCER PAIN
     Dosage: 4.2 MG, UNK
     Route: 062
     Dates: start: 20110501

REACTIONS (2)
  - ANAEMIA [None]
  - SUBDURAL HAEMATOMA [None]
